FAERS Safety Report 16419756 (Version 1)
Quarter: 2019Q2

REPORT INFORMATION
  Report Type: Spontaneous
  Country: US (occurrence: US)
  Receive Date: 20190612
  Receipt Date: 20190612
  Transmission Date: 20190711
  Serious: Yes (Other)
  Sender: FDA-Public Use
  Company Number: US-BAYER-2019-109729

PATIENT
  Age: 82 Year
  Sex: Female

DRUGS (1)
  1. BAYER LOW DOSE [Suspect]
     Active Substance: ASPIRIN
     Indication: BLOOD CHOLESTEROL INCREASED
     Dosage: 1 DF, TIW
     Route: 048
     Dates: start: 20190507, end: 20190604

REACTIONS (5)
  - Subcutaneous haematoma [Unknown]
  - Increased tendency to bruise [Unknown]
  - Off label use [Unknown]
  - Product use in unapproved indication [Unknown]
  - Haemorrhagic diathesis [Unknown]
